FAERS Safety Report 5502212-2 (Version None)
Quarter: 2007Q4

REPORT INFORMATION
  Report Type: 
  Country: None (occurrence: None)
  Receive Date: 20071030
  Receipt Date: 20070924
  Transmission Date: 20080405
  Serious: Yes (Other)
  Sender: FDA-Public Use
  Company Number: CA-JNJFOC-20070905254

PATIENT
  Sex: Male

DRUGS (8)
  1. PANCREASE [Suspect]
     Indication: DRUG USE FOR UNKNOWN INDICATION
  2. VASOTEC [Concomitant]
     Route: 065
  3. DOCUSATE [Concomitant]
     Route: 065
  4. HYDROMORPH [Concomitant]
     Route: 065
  5. CIMETIDINE [Concomitant]
     Route: 065
  6. EFFEXOR [Concomitant]
     Route: 065
  7. FLOMAX [Concomitant]
     Route: 065
  8. MUTLIVITAMINS [Concomitant]
     Route: 065

REACTIONS (4)
  - FAECAL VOLUME INCREASED [None]
  - FAECES DISCOLOURED [None]
  - PANCREATIC CARCINOMA METASTATIC [None]
  - WEIGHT DECREASED [None]
